FAERS Safety Report 9974823 (Version 1)
Quarter: 2014Q1

REPORT INFORMATION
  Report Type: Report from Study
  Country: US (occurrence: US)
  Receive Date: 20140306
  Receipt Date: 20140306
  Transmission Date: 20141002
  Serious: No
  Sender: FDA-Public Use
  Company Number: US-ABBVIE-13P-163-1159299-00

PATIENT
  Sex: Female

DRUGS (3)
  1. HUMIRA [Suspect]
     Indication: ENTERITIS
     Dosage: DAY 1
     Route: 058
     Dates: start: 20131008, end: 20131008
  2. HUMIRA [Suspect]
     Dosage: DAY 15
     Route: 058
     Dates: start: 20131023, end: 20131023
  3. HUMIRA [Suspect]
     Route: 058

REACTIONS (2)
  - Pollakiuria [Unknown]
  - Dyspepsia [Unknown]
